FAERS Safety Report 24722809 (Version 1)
Quarter: 2024Q4

REPORT INFORMATION
  Report Type: Spontaneous
  Country: CZ (occurrence: CZ)
  Receive Date: 20241211
  Receipt Date: 20241211
  Transmission Date: 20250115
  Serious: Yes (Hospitalization)
  Sender: MYLAN
  Company Number: CZ-MYLANLABS-2024M1105998

PATIENT
  Age: 60 Year
  Sex: Male

DRUGS (6)
  1. MIRTAZAPINE [Interacting]
     Active Substance: MIRTAZAPINE
     Indication: Product used for unknown indication
     Dosage: 15 MILLIGRAM, QD (IN THE EVENING)
     Route: 065
  2. DOSULEPIN HYDROCHLORIDE [Interacting]
     Active Substance: DOTHIEPIN HYDROCHLORIDE
     Indication: Product used for unknown indication
     Dosage: 25 MILLIGRAM, BID (25 MG TWICE A DAY), 50MG, QD
     Route: 065
  3. CHLORPROTHIXENE [Interacting]
     Active Substance: CHLORPROTHIXENE
     Indication: Anxiety
     Dosage: 15 MILLIGRAM, TID, 45 MILLIGRAM, QD
     Route: 065
  4. LEVOMEPROMAZINE [Interacting]
     Active Substance: LEVOMEPROMAZINE
     Indication: Product used for unknown indication
     Dosage: 50 MILLIGRAM, QD (25MG 0-0-2)
     Route: 065
  5. TRAZODONE [Interacting]
     Active Substance: TRAZODONE HYDROCHLORIDE
     Indication: Product used for unknown indication
     Dosage: 50 MILLIGRAM, QD (IN THE EVENING)
     Route: 065
  6. METOPROLOL [Interacting]
     Active Substance: METOPROLOL
     Indication: Product used for unknown indication
     Dosage: 50 MILLIGRAM, PM (50 MG IN THE EVENING)
     Route: 065

REACTIONS (2)
  - Orthostatic hypotension [Unknown]
  - Drug interaction [Recovered/Resolved]
